FAERS Safety Report 7235028-X (Version None)
Quarter: 2011Q1

REPORT INFORMATION
  Report Type: 
  Country: None (occurrence: None)
  Receive Date: 20110114
  Receipt Date: 20110114
  Transmission Date: 20110831
  Serious: Yes (Other)
  Sender: FDA-Public Use
  Company Number: None

PATIENT
  Age: 32 Year
  Sex: Female
  Weight: 88 kg

DRUGS (2)
  1. NICODERM [Suspect]
     Indication: SMOKING CESSATION THERAPY
     Dosage: 7 MG DAILY TRANSDERMAL
     Route: 062
     Dates: start: 20100827, end: 20100928
  2. LEVOTHYROXINE SODIUM [Concomitant]

REACTIONS (3)
  - ABORTION SPONTANEOUS [None]
  - PREGNANCY [None]
  - DRUG EXPOSURE DURING PREGNANCY [None]
